FAERS Safety Report 11445265 (Version 1)
Quarter: 2015Q3

REPORT INFORMATION
  Report Type: Spontaneous
  Country: US (occurrence: None)
  Receive Date: 20150901
  Receipt Date: 20150901
  Transmission Date: 20151125
  Serious: Yes (Other)
  Sender: FDA-Public Use
  Company Number: None

PATIENT
  Age: 93 Year
  Sex: Male
  Weight: 61.69 kg

DRUGS (11)
  1. BROVANA [Suspect]
     Active Substance: ARFORMOTEROL TARTRATE
     Indication: LUNG DISORDER
     Dosage: 1 VIAL TWICE DAILY
     Route: 055
     Dates: start: 20150505, end: 20150521
  2. NEBULIZER [Concomitant]
     Active Substance: DEVICE
  3. CHLORIDE ER [Concomitant]
  4. GARLIC. [Concomitant]
     Active Substance: GARLIC
  5. FUROSEMIDE. [Concomitant]
     Active Substance: FUROSEMIDE
  6. DONEPEZIL. [Concomitant]
     Active Substance: DONEPEZIL
  7. POTASSIUM [Concomitant]
     Active Substance: POTASSIUM
  8. ASPIRIN. [Concomitant]
     Active Substance: ASPIRIN
  9. LISINOPRIL. [Concomitant]
     Active Substance: LISINOPRIL
  10. DILTIAZEM [Concomitant]
     Active Substance: DILTIAZEM
  11. IRON [Concomitant]
     Active Substance: IRON

REACTIONS (3)
  - Urticaria [None]
  - Lip swelling [None]
  - Rash [None]

NARRATIVE: CASE EVENT DATE: 20150521
